FAERS Safety Report 4680631-4 (Version None)
Quarter: 2005Q2

REPORT INFORMATION
  Report Type: 
  Country: None (occurrence: None)
  Receive Date: 20050601
  Receipt Date: 20050331
  Transmission Date: 20051028
  Serious: Yes (Hospitalization)
  Sender: FDA-Public Use
  Company Number: 141725USA

PATIENT
  Age: 58 Year
  Sex: Female

DRUGS (2)
  1. TAMOXIFEN CITRATE [Suspect]
     Dates: start: 20040101
  2. HYDROCHLOROTHIAZIDE [Concomitant]

REACTIONS (1)
  - PULMONARY EMBOLISM [None]
